FAERS Safety Report 5851683-0 (Version None)
Quarter: 2008Q3

REPORT INFORMATION
  Report Type: 
  Country: None (occurrence: None)
  Receive Date: 20080820
  Receipt Date: 20080807
  Transmission Date: 20090109
  Serious: No
  Sender: FDA-Public Use
  Company Number: US-BOEHRINGER INGELHEIM GMBH, GERMANY-2008-BP-12519BP

PATIENT
  Sex: Male

DRUGS (3)
  1. SPIRIVA [Suspect]
     Indication: ASTHMA
     Route: 055
     Dates: start: 20070101
  2. ADVAIR DISKUS 100/50 [Suspect]
     Indication: ASTHMA
  3. XOPENEX [Concomitant]
     Indication: ASTHMA

REACTIONS (1)
  - GLOSSODYNIA [None]
